FAERS Safety Report 23079550 (Version 1)
Quarter: 2023Q4

REPORT INFORMATION
  Report Type: Spontaneous
  Country: US (occurrence: None)
  Receive Date: 20231018
  Receipt Date: 20231018
  Transmission Date: 20240110
  Serious: Yes (Hospitalization, Other)
  Sender: FDA-Public Use
  Company Number: US-Unichem Pharmaceuticals (USA) Inc-UCM202310-001299

PATIENT
  Age: 38 Year
  Sex: Female

DRUGS (3)
  1. QUETIAPINE [Suspect]
     Active Substance: QUETIAPINE
     Indication: Product used for unknown indication
     Dosage: OVERDOSE WITH UNKNOWN QUANTITY
  2. DIVALPROEX SODIUM [Suspect]
     Active Substance: DIVALPROEX SODIUM
     Indication: Product used for unknown indication
     Dosage: OVERDOSE WITH UNKNOWN QUANTITY
  3. AMPHETAMINE [Suspect]
     Active Substance: AMPHETAMINE
     Indication: Product used for unknown indication
     Dosage: OVERDOSE WITH UNKNOWN QUANTITY

REACTIONS (8)
  - Hypoxia [Recovered/Resolved]
  - Cardiac arrest [Recovered/Resolved]
  - Endotracheal intubation [Recovered/Resolved]
  - Pneumonia staphylococcal [Recovered/Resolved]
  - Hypopnoea [Recovered/Resolved]
  - Agitation [Recovered/Resolved]
  - Overdose [Unknown]
  - Suicide attempt [Unknown]
